FAERS Safety Report 10881978 (Version 1)
Quarter: 2015Q1

REPORT INFORMATION
  Report Type: Spontaneous
  Country: US (occurrence: None)
  Receive Date: 20150225
  Receipt Date: 20150225
  Transmission Date: 20150721
  Serious: Yes (Life-Threatening, Hospitalization)
  Sender: FDA-Public Use
  Company Number: None

PATIENT
  Age: 60 Year
  Sex: Male
  Weight: 83.46 kg

DRUGS (4)
  1. LIPITOR [Concomitant]
     Active Substance: ATORVASTATIN CALCIUM
  2. ZOSYN [Suspect]
     Active Substance: PIPERACILLIN SODIUM\TAZOBACTAM SODIUM
     Indication: ENTEROBACTER INFECTION
     Dosage: IV THREE TIMES DAILY, INTO VEIN
     Route: 042
     Dates: start: 20141101, end: 20141126
  3. PRILOSEC [Concomitant]
     Active Substance: OMEPRAZOLE MAGNESIUM
  4. ZOSYN [Suspect]
     Active Substance: PIPERACILLIN SODIUM\TAZOBACTAM SODIUM
     Indication: ESCHERICHIA INFECTION
     Dosage: IV THREE TIMES DAILY, INTO VEIN
     Route: 042
     Dates: start: 20141101, end: 20141126

REACTIONS (2)
  - Drug reaction with eosinophilia and systemic symptoms [None]
  - Oxygen saturation decreased [None]

NARRATIVE: CASE EVENT DATE: 20141020
